FAERS Safety Report 8258955-3 (Version None)
Quarter: 2012Q2

REPORT INFORMATION
  Report Type: 
  Country: None (occurrence: None)
  Receive Date: 20120404
  Receipt Date: 20120322
  Transmission Date: 20120825
  Serious: Yes (Other)
  Sender: FDA-Public Use
  Company Number: FR-ROCHE-1051804

PATIENT
  Sex: Male

DRUGS (2)
  1. CLONAZEPAM [Suspect]
     Indication: PRODUCT USED FOR UNKNOWN INDICATION
     Route: 048
     Dates: start: 20010101
  2. AMITRIPTYLINE HCL [Concomitant]
     Route: 048
     Dates: start: 20120229, end: 20120303

REACTIONS (6)
  - CHEST DISCOMFORT [None]
  - ANXIETY [None]
  - FATIGUE [None]
  - TREMOR [None]
  - DRY MOUTH [None]
  - TACHYCARDIA [None]
